FAERS Safety Report 9773132 (Version 2)
Quarter: 2014Q1

REPORT INFORMATION
  Report Type: Spontaneous
  Country: JP (occurrence: JP)
  Receive Date: 20131219
  Receipt Date: 20140114
  Transmission Date: 20141002
  Serious: Yes (Life-Threatening, Hospitalization, Other)
  Sender: FDA-Public Use
  Company Number: JP-TEVA-449018ISR

PATIENT
  Age: 46 Year
  Sex: Female
  Weight: 39.5 kg

DRUGS (3)
  1. SAXIZON FOR INJECTION 100MG [Suspect]
     Indication: PREOPERATIVE CARE
     Dosage: 100 MILLIGRAM DAILY;
     Route: 042
     Dates: start: 20131203, end: 20131203
  2. RIVOTRIL [Concomitant]
     Indication: POLYNEUROPATHY
     Dosage: .5 MILLIGRAM DAILY;
     Route: 048
  3. JUVELAN [Concomitant]
     Indication: HYPERKERATOSIS
     Dosage: 1800 MILLIGRAM DAILY;
     Route: 048

REACTIONS (7)
  - Anaphylactoid shock [Recovered/Resolved]
  - Sneezing [Recovered/Resolved]
  - Cough [Recovered/Resolved]
  - Urticaria [Recovered/Resolved]
  - Lip swelling [Recovered/Resolved]
  - Eye pruritus [Recovered/Resolved]
  - Nasal congestion [Recovered/Resolved]
